FAERS Safety Report 19853098 (Version 2)
Quarter: 2022Q1

REPORT INFORMATION
  Report Type: Spontaneous
  Country: US (occurrence: US)
  Receive Date: 20210919
  Receipt Date: 20220109
  Transmission Date: 20220423
  Serious: No
  Sender: FDA-Public Use
  Company Number: US-SA-SAC20210916000809

PATIENT
  Age: 38 Year
  Sex: Female

DRUGS (1)
  1. DUPIXENT [Suspect]
     Active Substance: DUPILUMAB
     Indication: Asthma
     Dosage: 300 MG, FREQUENCY OTHER
     Route: 058
     Dates: start: 20210910

REACTIONS (6)
  - Drug hypersensitivity [Unknown]
  - Injection site swelling [Unknown]
  - Injection site erythema [Unknown]
  - Injection site pruritus [Unknown]
  - Dyspnoea [Unknown]
  - Off label use [Unknown]

NARRATIVE: CASE EVENT DATE: 20210910
